FAERS Safety Report 18283688 (Version 2)
Quarter: 2021Q3

REPORT INFORMATION
  Report Type: Spontaneous
  Country: US (occurrence: US)
  Receive Date: 20200918
  Receipt Date: 20210914
  Transmission Date: 20211014
  Serious: Yes (Hospitalization, Other)
  Sender: FDA-Public Use
  Company Number: US-PURDUE-USA-2020-0166619

PATIENT
  Age: 14 Year
  Sex: Female

DRUGS (1)
  1. OXYCONTIN [Suspect]
     Active Substance: OXYCODONE HYDROCHLORIDE
     Indication: PRODUCT USED FOR UNKNOWN INDICATION
     Dosage: UNK
     Route: 048

REACTIONS (12)
  - Mental status changes [Unknown]
  - Overdose [Unknown]
  - Weight decreased [Unknown]
  - Cerebral disorder [Unknown]
  - Hospitalisation [Unknown]
  - Mental disorder [Unknown]
  - Drug dependence [Unknown]
  - General physical health deterioration [Unknown]
  - Asthenia [Unknown]
  - Drug abuse [Unknown]
  - Lung disorder [Unknown]
  - Unevaluable event [Unknown]
